FAERS Safety Report 6168508-9 (Version None)
Quarter: 2009Q2

REPORT INFORMATION
  Report Type: 
  Country: None (occurrence: None)
  Receive Date: 20090427
  Receipt Date: 20090417
  Transmission Date: 20091009
  Serious: Yes (Hospitalization)
  Sender: FDA-Public Use
  Company Number: A0780405A

PATIENT
  Age: 80 Year
  Sex: Female
  Weight: 68.2 kg

DRUGS (10)
  1. AVANDIA [Suspect]
     Indication: DIABETES MELLITUS
     Dosage: 2MG PER DAY
     Route: 048
     Dates: start: 20060206, end: 20070701
  2. METFORMIN HCL [Concomitant]
  3. INSULIN [Concomitant]
  4. AMARYL [Concomitant]
  5. METOPROLOL SUCCINATE [Concomitant]
  6. LIPITOR [Concomitant]
  7. ZOLOFT [Concomitant]
  8. RANITIDINE [Concomitant]
  9. PROTONIX [Concomitant]
  10. SYNTHROID [Concomitant]

REACTIONS (1)
  - CEREBROVASCULAR ACCIDENT [None]
